FAERS Safety Report 14402297 (Version 2)
Quarter: 2018Q1

REPORT INFORMATION
  Report Type: Spontaneous
  Country: JP (occurrence: JP)
  Receive Date: 20180117
  Receipt Date: 20180126
  Transmission Date: 20180509
  Serious: Yes (Death, Other)
  Sender: FDA-Public Use
  Company Number: PHJP2018JP001007

PATIENT
  Sex: Female

DRUGS (5)
  1. CARBAMAZEPINE. [Suspect]
     Active Substance: CARBAMAZEPINE
     Indication: SCHIZOPHRENIA
     Dosage: 600 MG, UNK
     Route: 048
  2. LITHIUM CARBONATE. [Concomitant]
     Active Substance: LITHIUM CARBONATE
     Indication: PRODUCT USED FOR UNKNOWN INDICATION
     Dosage: 600 MG, UNK
     Route: 065
  3. SULTOPRIDE [Suspect]
     Active Substance: SULTOPRIDE
     Indication: PRODUCT USED FOR UNKNOWN INDICATION
     Dosage: 600 MG, UNK
     Route: 065
  4. ZOTEPINE [Suspect]
     Active Substance: ZOTEPINE
     Indication: PRODUCT USED FOR UNKNOWN INDICATION
     Dosage: 50 MG, UNK
     Route: 065
  5. BIPERIDEN [Concomitant]
     Active Substance: BIPERIDEN
     Indication: PRODUCT USED FOR UNKNOWN INDICATION
     Dosage: 6 MG, UNK
     Route: 065

REACTIONS (15)
  - Constipation [Unknown]
  - Goitre [Unknown]
  - Cardio-respiratory arrest [Fatal]
  - Megacolon [Unknown]
  - Neuroleptic malignant syndrome [Unknown]
  - Productive cough [Unknown]
  - Aspiration [Fatal]
  - Pneumonia [Unknown]
  - Insomnia [Unknown]
  - Hypoalbuminaemia [Unknown]
  - Upper gastrointestinal haemorrhage [Unknown]
  - Nausea [Unknown]
  - Anaemia [Unknown]
  - Product use in unapproved indication [Unknown]
  - Respiratory disorder [Unknown]
